FAERS Safety Report 20018138 (Version 1)
Quarter: 2021Q4

REPORT INFORMATION
  Report Type: Spontaneous
  Country: IN (occurrence: IN)
  Receive Date: 20211101
  Receipt Date: 20211101
  Transmission Date: 20220304
  Serious: Yes (Hospitalization, Other)
  Sender: FDA-Public Use
  Company Number: IN-BRISTOL-MYERS SQUIBB COMPANY-BMS-2021-109937

PATIENT
  Age: 32 Year
  Sex: Female

DRUGS (3)
  1. TRIAMCINOLONE ACETONIDE [Suspect]
     Active Substance: TRIAMCINOLONE ACETONIDE
     Indication: Optic neuritis
     Dosage: 40 MILLIGRAM
     Route: 065
  2. PREDNISOLONE [Suspect]
     Active Substance: PREDNISOLONE
     Indication: Pemphigus
     Dosage: 40 MILLIGRAM
     Route: 048
  3. CYCLOPHOSPHAMIDE [Suspect]
     Active Substance: CYCLOPHOSPHAMIDE
     Indication: Pemphigus
     Dosage: 200 MILLIGRAM
     Route: 065

REACTIONS (7)
  - Retinal haemorrhage [Recovered/Resolved]
  - Retinitis [Recovered/Resolved with Sequelae]
  - Ophthalmic herpes simplex [Recovering/Resolving]
  - Optic atrophy [Unknown]
  - Cytomegalovirus chorioretinitis [Recovered/Resolved with Sequelae]
  - Retinal occlusive vasculitis [Recovering/Resolving]
  - Intentional product use issue [Unknown]
